FAERS Safety Report 5837879-2 (Version None)
Quarter: 2008Q3

REPORT INFORMATION
  Report Type: 
  Country: None (occurrence: None)
  Receive Date: 20080808
  Receipt Date: 20080508
  Transmission Date: 20090109
  Serious: No
  Sender: FDA-Public Use
  Company Number: A0726881A

PATIENT
  Sex: Male

DRUGS (1)
  1. PAXIL CR [Suspect]
     Indication: DEPRESSION
     Route: 048

REACTIONS (5)
  - ASTHENIA [None]
  - FEELING ABNORMAL [None]
  - INSOMNIA [None]
  - VISION BLURRED [None]
  - VISUAL IMPAIRMENT [None]
